FAERS Safety Report 8257076-3 (Version None)
Quarter: 2012Q2

REPORT INFORMATION
  Report Type: 
  Country: None (occurrence: None)
  Receive Date: 20120403
  Receipt Date: 20120327
  Transmission Date: 20120825
  Serious: Yes (Other)
  Sender: FDA-Public Use
  Company Number: DE-GLAXOSMITHKLINE-B0792972A

PATIENT
  Age: 60 Year
  Sex: Male

DRUGS (2)
  1. FLUTICASONE PROPIONATE/SALMETEROL [Suspect]
     Indication: CHRONIC OBSTRUCTIVE PULMONARY DISEASE
     Dosage: 250UG TWICE PER DAY
     Route: 055
  2. RITONAVIR [Suspect]
     Indication: HIV INFECTION

REACTIONS (6)
  - WEIGHT INCREASED [None]
  - MUSCULAR WEAKNESS [None]
  - CUSHING'S SYNDROME [None]
  - OBESITY [None]
  - HYPERTENSION [None]
  - DRUG INTERACTION [None]
